FAERS Safety Report 4929386-6 (Version None)
Quarter: 2006Q1

REPORT INFORMATION
  Report Type: 
  Country: None (occurrence: None)
  Receive Date: 20060224
  Receipt Date: 20060216
  Transmission Date: 20060701
  Serious: Yes (Death)
  Sender: FDA-Public Use
  Company Number: HQWYE420704NOV05

PATIENT
  Age: 77 Year
  Sex: Male

DRUGS (9)
  1. MYLOTARG [Suspect]
     Indication: ACUTE MYELOID LEUKAEMIA
     Dosage: 7 MG/M^2 1X PER 1 DAY INRAVENOUS DRIP
     Route: 041
     Dates: start: 20051017, end: 20051017
  2. MYLOTARG [Suspect]
     Indication: ACUTE MYELOID LEUKAEMIA
     Dosage: 7 MG/M^2 1X PER 1 DAY INRAVENOUS DRIP
     Route: 041
     Dates: start: 20051031, end: 20051031
  3. CYTARABINE [Concomitant]
  4. ALLOPURINOL [Concomitant]
  5. ALLOPURINOL [Concomitant]
  6. DEXAMETHASONE SODIUM PHOSPHATE [Concomitant]
  7. DEXAMETHASONE SODIUM PHOSPHATE [Concomitant]
  8. CHLORPHENIRAMINE MALEATE [Concomitant]
  9. CHLORPHENIRAMINE MALEATE [Concomitant]

REACTIONS (9)
  - ARTERIOSCLEROSIS [None]
  - BODY TEMPERATURE INCREASED [None]
  - CARDIAC FAILURE [None]
  - DISEASE PROGRESSION [None]
  - ELECTROCARDIOGRAM ABNORMAL [None]
  - HYPERHIDROSIS [None]
  - HYPOTENSION [None]
  - INFUSION RELATED REACTION [None]
  - THROMBOSIS [None]
